FAERS Safety Report 9817803 (Version 1)
Quarter: 2014Q1

REPORT INFORMATION
  Report Type: Spontaneous
  Country: IT (occurrence: IT)
  Receive Date: 20140115
  Receipt Date: 20140115
  Transmission Date: 20141002
  Serious: Yes (Hospitalization)
  Sender: FDA-Public Use
  Company Number: IT-ROCHE-1333399

PATIENT
  Age: 78 Year
  Sex: Male

DRUGS (4)
  1. LUCENTIS [Suspect]
     Indication: RETINAL VEIN OCCLUSION
     Dosage: 1 POS.
     Route: 050
     Dates: start: 20121010
  2. LUCENTIS [Suspect]
     Dosage: 1 POS.
     Route: 050
     Dates: start: 20131010
  3. NORVASC [Concomitant]
  4. CARVIPRESS [Concomitant]

REACTIONS (1)
  - Acute myocardial infarction [Recovered/Resolved]
